FAERS Safety Report 9692666 (Version 8)
Quarter: 2015Q3

REPORT INFORMATION
  Report Type: Report from Study
  Country: CA (occurrence: CA)
  Receive Date: 20131118
  Receipt Date: 20150901
  Transmission Date: 20151125
  Serious: Yes (Hospitalization, Other)
  Sender: FDA-Public Use
  Company Number: PHHY2012CA116569

PATIENT
  Age: 83 Year
  Sex: Female

DRUGS (1)
  1. ZOMETA [Suspect]
     Active Substance: ZOLEDRONIC ACID
     Indication: BREAST CANCER
     Dosage: 4 MG, EVERY 6 MONTHS
     Route: 042
     Dates: start: 20121114

REACTIONS (14)
  - Pain in extremity [Unknown]
  - Drug hypersensitivity [Unknown]
  - Throat tightness [Unknown]
  - Headache [Unknown]
  - Cough [Unknown]
  - Haemangioma [Unknown]
  - Thrombosis [Unknown]
  - Influenza like illness [Unknown]
  - Dizziness [Unknown]
  - Dyspnoea [Unknown]
  - Pain [Unknown]
  - Fall [Unknown]
  - Hypertension [Unknown]
  - Rales [Unknown]

NARRATIVE: CASE EVENT DATE: 20121114
